FAERS Safety Report 17028262 (Version 6)
Quarter: 2020Q1

REPORT INFORMATION
  Report Type: Report from Study
  Country: US (occurrence: US)
  Receive Date: 20191113
  Receipt Date: 20200324
  Transmission Date: 20200409
  Serious: Yes (Hospitalization, Other)
  Sender: FDA-Public Use
  Company Number: US-ACTELION-A-NJ2019-198076

PATIENT
  Sex: Female
  Weight: 83.9 kg

DRUGS (5)
  1. TADALAFIL. [Concomitant]
     Active Substance: TADALAFIL
  2. BOSENTAN. [Concomitant]
     Active Substance: BOSENTAN
  3. ELIQUIS [Concomitant]
     Active Substance: APIXABAN
  4. UPTRAVI [Suspect]
     Active Substance: SELEXIPAG
     Indication: PULMONARY ARTERIAL HYPERTENSION
     Dosage: 1000 MCG, BID
     Route: 048
  5. SYNTHROID [Concomitant]
     Active Substance: LEVOTHYROXINE SODIUM
     Dosage: 50 MCG, QD

REACTIONS (10)
  - Pulmonary hypertension [Unknown]
  - Bacterial infection [Unknown]
  - Urinary tract infection [Unknown]
  - Neck pain [Unknown]
  - Back pain [Unknown]
  - Chest pain [Unknown]
  - Vitamin D decreased [Unknown]
  - Myocardial necrosis marker increased [Unknown]
  - Hospitalisation [Unknown]
  - Dyspnoea [Unknown]
